FAERS Safety Report 10556951 (Version 2)
Quarter: 2014Q4

REPORT INFORMATION
  Report Type: Spontaneous
  Country: DE (occurrence: DE)
  Receive Date: 20141031
  Receipt Date: 20141107
  Transmission Date: 20150529
  Serious: Yes (Other)
  Sender: FDA-Public Use
  Company Number: DE-JNJFOC-20141015168

PATIENT
  Age: 81 Year
  Sex: Female
  Weight: 60 kg

DRUGS (13)
  1. HEPARIN [Concomitant]
     Active Substance: HEPARIN SODIUM
     Route: 065
  2. XARELTO [Suspect]
     Active Substance: RIVAROXABAN
     Indication: CEREBROVASCULAR ACCIDENT PROPHYLAXIS
     Route: 048
     Dates: start: 20140414, end: 201409
  3. XARELTO [Suspect]
     Active Substance: RIVAROXABAN
     Indication: ATRIAL FIBRILLATION
     Route: 048
     Dates: start: 20140414, end: 201409
  4. DIOVAN [Concomitant]
     Active Substance: VALSARTAN
     Route: 065
  5. FAUSTAN [Concomitant]
     Route: 065
  6. FALITHROM [Concomitant]
     Active Substance: PHENPROCOUMON
     Route: 065
     Dates: start: 2013
  7. ASPIRIN. [Concomitant]
     Active Substance: ASPIRIN
     Route: 065
  8. DABIGATRAN [Concomitant]
     Active Substance: DABIGATRAN
     Route: 065
  9. WARFARIN [Concomitant]
     Active Substance: WARFARIN
     Route: 065
  10. APIXABAN [Concomitant]
     Active Substance: APIXABAN
     Route: 065
  11. CYNT [Concomitant]
     Active Substance: MOXONIDINE
     Route: 065
  12. FONDAPARINUX [Concomitant]
     Active Substance: FONDAPARINUX
     Route: 065
  13. SIMVASTATIN. [Concomitant]
     Active Substance: SIMVASTATIN
     Route: 065

REACTIONS (2)
  - Retinal haemorrhage [Not Recovered/Not Resolved]
  - Retinal detachment [Not Recovered/Not Resolved]

NARRATIVE: CASE EVENT DATE: 201409
